FAERS Safety Report 8797958 (Version 2)
Quarter: 2012Q4

REPORT INFORMATION
  Report Type: Report from Study
  Country: US (occurrence: US)
  Receive Date: 20120920
  Receipt Date: 20121102
  Transmission Date: 20130627
  Serious: Yes (Hospitalization)
  Sender: FDA-Public Use
  Company Number: US-JNJFOC-20120908554

PATIENT
  Age: 17 Year
  Sex: Female
  Weight: 52.5 kg

DRUGS (3)
  1. REMICADE [Suspect]
     Indication: INFLAMMATORY BOWEL DISEASE
     Route: 042
     Dates: start: 20090116
  2. PROGRAF [Concomitant]
  3. PROTOPIC [Concomitant]

REACTIONS (1)
  - Pyoderma gangrenosum [Recovered/Resolved]
